FAERS Safety Report 6856199-0 (Version None)
Quarter: 2010Q2

REPORT INFORMATION
  Report Type: 
  Country: None (occurrence: None)
  Receive Date: 20100629
  Receipt Date: 20100521
  Transmission Date: 20101027
  Serious: No
  Sender: FDA-Public Use
  Company Number: US-WYE-H15287210

PATIENT
  Sex: Female

DRUGS (3)
  1. PRISTIQ [Suspect]
  2. DEPAKOTE [Suspect]
  3. KLONOPIN [Suspect]

REACTIONS (3)
  - ANORGASMIA [None]
  - DRUG INTERACTION [None]
  - LOSS OF LIBIDO [None]
